FAERS Safety Report 25073219 (Version 1)
Quarter: 2025Q1

REPORT INFORMATION
  Report Type: Report from Study
  Country: CO (occurrence: CO)
  Receive Date: 20250313
  Receipt Date: 20250313
  Transmission Date: 20250409
  Serious: Yes (Other)
  Sender: ABBVIE
  Company Number: CO-JNJFOC-20250308339

PATIENT
  Age: 84 Year
  Sex: Male
  Weight: 64 kg

DRUGS (3)
  1. IMBRUVICA [Suspect]
     Active Substance: IBRUTINIB
     Indication: Chronic lymphocytic leukaemia
     Route: 048
     Dates: start: 20200711
  2. COVID-19 vaccine [Concomitant]
     Indication: COVID-19 immunisation
     Route: 030
     Dates: start: 202104
  3. COVID-19 vaccine [Concomitant]
     Indication: COVID-19 immunisation
     Route: 030
     Dates: start: 202104

REACTIONS (2)
  - Syncope [Recovering/Resolving]
  - Seizure [Recovering/Resolving]

NARRATIVE: CASE EVENT DATE: 20250225
